FAERS Safety Report 9266587 (Version 2)
Quarter: 2013Q2

REPORT INFORMATION
  Report Type: Report from Study
  Country: CA (occurrence: CA)
  Receive Date: 20130502
  Receipt Date: 20130507
  Transmission Date: 20140414
  Serious: Yes (Disabling)
  Sender: FDA-Public Use
  Company Number: PHHY2013CA042669

PATIENT
  Age: 75 Year
  Sex: Female

DRUGS (5)
  1. ACLASTA [Suspect]
     Indication: OSTEOPOROSIS
     Dosage: 5 MG/100ML, UNK
     Route: 042
     Dates: start: 20120507
  2. LIPITOR [Concomitant]
  3. ALTACE [Concomitant]
  4. CAL D                              /00944201/ [Concomitant]
  5. ASA [Concomitant]

REACTIONS (2)
  - Femur fracture [Unknown]
  - Pathological fracture [Unknown]
